FAERS Safety Report 7318977-3 (Version None)
Quarter: 2011Q1

REPORT INFORMATION
  Report Type: 
  Country: None (occurrence: None)
  Receive Date: 20110228
  Receipt Date: 20110216
  Transmission Date: 20110831
  Serious: Yes (Hospitalization, Other)
  Sender: FDA-Public Use
  Company Number: US-JNJFOC-20100809277

PATIENT
  Sex: Male
  Weight: 81.19 kg

DRUGS (7)
  1. LISINOPRIL [Concomitant]
  2. OXYBUTYNIN [Concomitant]
  3. REMICADE [Suspect]
     Indication: ANKYLOSING SPONDYLITIS
     Route: 042
  4. OMEPRAZOLE [Concomitant]
  5. METFORMIN [Concomitant]
  6. PRAVACHOL [Concomitant]
  7. AMBIEN [Concomitant]

REACTIONS (3)
  - BLADDER TRANSITIONAL CELL CARCINOMA [None]
  - BLADDER DYSPLASIA [None]
  - PROSTATE CANCER [None]
